FAERS Safety Report 18170623 (Version 3)
Quarter: 2021Q1

REPORT INFORMATION
  Report Type: Report from Study
  Country: US (occurrence: US)
  Receive Date: 20200819
  Receipt Date: 20210219
  Transmission Date: 20210419
  Serious: Yes (Hospitalization, Other)
  Sender: FDA-Public Use
  Company Number: US-BIOGEN-2020BI00913370

PATIENT
  Age: 56 Year
  Sex: Male

DRUGS (3)
  1. MODERNA COVID?19 VACCINE [Suspect]
     Active Substance: CX-024414
     Indication: COVID-19
     Route: 065
     Dates: start: 202101
  2. TYSABRI [Suspect]
     Active Substance: NATALIZUMAB
     Indication: MULTIPLE SCLEROSIS
     Route: 065
     Dates: start: 20200312
  3. TYSABRI [Suspect]
     Active Substance: NATALIZUMAB
     Route: 065
     Dates: start: 20200312

REACTIONS (18)
  - COVID-19 [Recovered/Resolved]
  - Abdominal discomfort [Unknown]
  - Fatigue [Recovered/Resolved]
  - Gastric haemorrhage [Unknown]
  - Colitis ulcerative [Unknown]
  - Hernia [Unknown]
  - Prescribed underdose [Not Recovered/Not Resolved]
  - Weight decreased [Recovered/Resolved]
  - Lymphadenopathy [Unknown]
  - Disorientation [Unknown]
  - Nausea [Not Recovered/Not Resolved]
  - Haemorrhoids [Unknown]
  - Diarrhoea [Unknown]
  - Vertigo [Not Recovered/Not Resolved]
  - Pyrexia [Recovered/Resolved]
  - Diverticulitis [Unknown]
  - Headache [Unknown]
  - Diverticulum [Unknown]

NARRATIVE: CASE EVENT DATE: 2020
